FAERS Safety Report 9595269 (Version 1)
Quarter: 2013Q4

REPORT INFORMATION
  Report Type: Spontaneous
  Country: US (occurrence: US)
  Receive Date: 20131004
  Receipt Date: 20131004
  Transmission Date: 20140711
  Serious: Yes (Hospitalization)
  Sender: FDA-Public Use
  Company Number: US-NAPPMUNDI-USA-2012-0093444

PATIENT
  Age: 35 Year
  Sex: Female

DRUGS (1)
  1. BUTRANS [Suspect]
     Indication: PELVIC PAIN
     Dosage: 20 MCG/HR, UNK
     Route: 062
     Dates: start: 201207

REACTIONS (5)
  - Inadequate analgesia [Unknown]
  - Hypokinesia [Unknown]
  - Anxiety [Unknown]
  - Insomnia [Unknown]
  - Product adhesion issue [Unknown]
